FAERS Safety Report 20441593 (Version 1)
Quarter: 2022Q1

REPORT INFORMATION
  Report Type: Spontaneous
  Country: AR (occurrence: AR)
  Receive Date: 20220208
  Receipt Date: 20220208
  Transmission Date: 20220423
  Serious: Yes (Other)
  Sender: FDA-Public Use
  Company Number: AR-AMGEN-ARGSP2022013230

PATIENT
  Sex: Female

DRUGS (1)
  1. ADALIMUMAB [Suspect]
     Active Substance: ADALIMUMAB
     Indication: Spondylitis
     Dosage: UNK
     Route: 065

REACTIONS (8)
  - Adrenocortical insufficiency acute [Recovering/Resolving]
  - Road traffic accident [Unknown]
  - Foot fracture [Unknown]
  - Pain in extremity [Unknown]
  - Accidental exposure to product [Unknown]
  - Wrong technique in product usage process [Unknown]
  - Product dose omission issue [Unknown]
  - Spondylitis [Unknown]

NARRATIVE: CASE EVENT DATE: 20220113
